FAERS Safety Report 6143589-7 (Version None)
Quarter: 2009Q2

REPORT INFORMATION
  Report Type: 
  Country: None (occurrence: None)
  Receive Date: 20090403
  Receipt Date: 20090327
  Transmission Date: 20091009
  Serious: Yes (Hospitalization)
  Sender: FDA-Public Use
  Company Number: US-GENENTECH-280079

PATIENT
  Sex: Female
  Weight: 79.3 kg

DRUGS (8)
  1. BLINDED PLACEBO [Suspect]
     Indication: DIABETIC RETINAL OEDEMA
     Dosage: UNK
     Route: 031
     Dates: start: 20081125
  2. BLINDED RANIBIZUMAB [Suspect]
     Indication: DIABETIC RETINAL OEDEMA
     Dosage: UNK
     Route: 031
     Dates: start: 20081125
  3. METFORMIN HCL [Concomitant]
     Indication: DIABETES MELLITUS
     Dosage: UNK
     Dates: start: 20071127
  4. ZESTRIL [Concomitant]
     Indication: HYPERTENSION
     Dosage: UNK
     Dates: start: 20071127
  5. DILTIAZEM [Concomitant]
     Indication: HYPERTENSION
     Dosage: UNK
     Dates: start: 20071127
  6. WARFARIN SODIUM [Concomitant]
     Indication: ARRHYTHMIA
     Dosage: UNK
     Dates: start: 20080201, end: 20081108
  7. WARFARIN SODIUM [Concomitant]
     Dosage: UNK
     Dates: start: 20081115
  8. SOTALOL HCL [Concomitant]
     Indication: ARRHYTHMIA
     Dosage: UNK
     Dates: start: 20080201

REACTIONS (1)
  - CEREBROVASCULAR ACCIDENT [None]
